FAERS Safety Report 6993642-0 (Version None)
Quarter: 2010Q3

REPORT INFORMATION
  Report Type: 
  Country: None (occurrence: None)
  Receive Date: 20100917
  Receipt Date: 20100113
  Transmission Date: 20110219
  Serious: Yes (Other)
  Sender: FDA-Public Use
  Company Number: US-ASTRAZENECA-2007UW05912

PATIENT
  Sex: Male

DRUGS (8)
  1. SEROQUEL [Suspect]
     Dosage: 100 TO 200 MG
     Route: 048
     Dates: start: 20030214
  2. LEXAPRO [Concomitant]
     Dates: start: 20030214
  3. VIOXX [Concomitant]
     Dates: start: 20030214
  4. LEVOXYL [Concomitant]
     Dates: start: 20030214
  5. LISINOPRIL [Concomitant]
     Dates: start: 20030214
  6. HYDROCHLOROT [Concomitant]
     Dates: start: 20030214
  7. METHYLPHENID [Concomitant]
     Dates: start: 20030214
  8. GEODON [Concomitant]
     Dates: start: 20030412

REACTIONS (3)
  - DIABETES MELLITUS [None]
  - KETOACIDOSIS [None]
  - PANCREATITIS [None]
